FAERS Safety Report 4779908-3 (Version None)
Quarter: 2005Q3

REPORT INFORMATION
  Report Type: 
  Country: None (occurrence: None)
  Receive Date: 20050914
  Receipt Date: 20050430
  Transmission Date: 20060218
  Serious: Yes (Hospitalization)
  Sender: FDA-Public Use
  Company Number: 163-20785-05050028

PATIENT
  Age: 61 Year
  Sex: Female
  Weight: 113.8529 kg

DRUGS (10)
  1. THALOMID [Suspect]
     Indication: MULTIPLE MYELOMA
     Dosage: ORAL
     Route: 048
     Dates: start: 20041101
  2. BORTEZOMIB (BORTEZOMIB) [Suspect]
     Indication: MULTIPLE MYELOMA
     Dosage: 2 MG, DAILY
     Dates: start: 20041102, end: 20041105
  3. DEXAMETHASONE [Suspect]
     Indication: MULTIPLE MYELOMA
     Dates: start: 20041101
  4. CISPLATIN [Suspect]
     Indication: MULTIPLE MYELOMA
     Dates: start: 20041101
  5. ADRIAMYCIN PFS [Suspect]
     Indication: MULTIPLE MYELOMA
     Dates: start: 20041101
  6. CYCLOPHOSPHAMIDE [Suspect]
     Indication: MULTIPLE MYELOMA
     Dates: start: 20041101
  7. ETOPOSIDE [Suspect]
     Indication: MULTIPLE MYELOMA
     Dates: start: 20041101
  8. HYDROCODONE/ APAP (VICODIN) [Concomitant]
  9. METFORMIN HCL [Concomitant]
  10. LISINOPRIL/ HDYROCHLOROTHIAZIDE (PRINZIDE) [Concomitant]

REACTIONS (2)
  - BACK PAIN [None]
  - DEHYDRATION [None]
